FAERS Safety Report 10236909 (Version 1)
Quarter: 2014Q2

REPORT INFORMATION
  Report Type: Spontaneous
  Country: US (occurrence: CA)
  Receive Date: 20140613
  Receipt Date: 20140613
  Transmission Date: 20141212
  Serious: Yes (Other)
  Sender: FDA-Public Use
  Company Number: CA-TEVA-487377USA

PATIENT
  Age: 28 Year
  Sex: Female

DRUGS (1)
  1. PLAN B ONE-STEP [Suspect]

REACTIONS (3)
  - Haemorrhage [Not Recovered/Not Resolved]
  - Abdominal pain [Not Recovered/Not Resolved]
  - Inappropriate schedule of drug administration [Unknown]
